FAERS Safety Report 5535712-X (Version None)
Quarter: 2007Q4

REPORT INFORMATION
  Report Type: 
  Country: None (occurrence: None)
  Receive Date: 20071204
  Receipt Date: 20071204
  Transmission Date: 20080405
  Serious: Yes (Hospitalization)
  Sender: FDA-Public Use
  Company Number: None

PATIENT
  Sex: Female
  Weight: 82.1 kg

DRUGS (2)
  1. FLUOROURACIL [Suspect]
     Dosage: 8000 MG
  2. MITOMYCIN-C BULK POWDER [Suspect]
     Dosage: 20 MG

REACTIONS (1)
  - NEUTROPHIL COUNT DECREASED [None]
